FAERS Safety Report 9740695 (Version 3)
Quarter: 2014Q1

REPORT INFORMATION
  Report Type: Spontaneous
  Country: JP (occurrence: JP)
  Receive Date: 20131209
  Receipt Date: 20140122
  Transmission Date: 20141002
  Serious: Yes (Other)
  Sender: FDA-Public Use
  Company Number: JP-PFIZER INC-2013348522

PATIENT
  Age: 66 Year
  Sex: Female
  Weight: 55 kg

DRUGS (10)
  1. LYRICA [Suspect]
     Indication: NEURALGIA
     Dosage: 75 MG, 1X/DAY
     Route: 048
     Dates: start: 20130819
  2. LYRICA [Suspect]
     Dosage: 75 MG, 2X/DAY
     Route: 048
     Dates: start: 20130827, end: 20130828
  3. CELECOX [Concomitant]
     Dosage: UNK
  4. MUCOSTA [Concomitant]
     Dosage: UNK
  5. PLAVIX [Concomitant]
     Dosage: UNK
  6. OLMETEC [Concomitant]
     Dosage: UNK
  7. BAYASPIRIN [Concomitant]
     Dosage: UNK
  8. NEXIUM [Concomitant]
     Dosage: UNK
  9. AMARYL [Concomitant]
     Dosage: UNK
  10. LIVALO [Concomitant]
     Dosage: UNK

REACTIONS (2)
  - Hepatic function abnormal [Recovered/Resolved]
  - Drug effect incomplete [Unknown]
